FAERS Safety Report 14647221 (Version 4)
Quarter: 2020Q3

REPORT INFORMATION
  Report Type: Spontaneous
  Country: US (occurrence: US)
  Receive Date: 20180316
  Receipt Date: 20200824
  Transmission Date: 20201102
  Serious: No
  Sender: FDA-Public Use
  Company Number: US-PFIZER INC-2018105102

PATIENT
  Age: 48 Year
  Sex: Female

DRUGS (8)
  1. XELJANZ XR [Suspect]
     Active Substance: TOFACITINIB CITRATE
     Indication: RHEUMATOID ARTHRITIS
     Dosage: 11 MG, DAILY
     Route: 048
     Dates: start: 2018
  2. KLOR?CON/EF [Concomitant]
     Active Substance: POTASSIUM BICARBONATE
     Dosage: UNK [25 MEQ TABLET EFF]
  3. CYMBALTA [Concomitant]
     Active Substance: DULOXETINE HYDROCHLORIDE
     Dosage: UNK [20 MG CAPSULE]
  4. HYDROCHLOROTHIAZIDE. [Concomitant]
     Active Substance: HYDROCHLOROTHIAZIDE
     Dosage: UNK [12.5 MG CAPSULE]
  5. ADVAIR HFA [Concomitant]
     Active Substance: FLUTICASONE PROPIONATE\SALMETEROL XINAFOATE
     Dosage: UNK [100?50 MCG BLST W/DEV] [FLUTICASONE PROPIONATE 100 MCG AND SALMETEROL XINAFOATE 50 MCG]
  6. RANITIDINE HCL [Concomitant]
     Active Substance: RANITIDINE HYDROCHLORIDE
     Dosage: UNK [150 MG CAPSULE]
  7. SINGULAIR [Concomitant]
     Active Substance: MONTELUKAST SODIUM
     Dosage: UNK [10 MG TABLET]
  8. JUNEL [Concomitant]
     Active Substance: ETHINYL ESTRADIOL\NORETHINDRONE ACETATE
     Dosage: UNK, (1.5?0.03 MG) [1.5 MG NORETHINDRONE ACETATE AND 0.03 MG ETHINYL ESTRADIOL]

REACTIONS (3)
  - Drug ineffective [Unknown]
  - Illness [Unknown]
  - Pain [Not Recovered/Not Resolved]
